FAERS Safety Report 7606669-2 (Version None)
Quarter: 2011Q3

REPORT INFORMATION
  Report Type: 
  Country: None (occurrence: None)
  Receive Date: 20110705
  Receipt Date: 20110617
  Transmission Date: 20111222
  Serious: Yes (Other)
  Sender: FDA-Public Use
  Company Number: DSA_47032_2011

PATIENT
  Sex: Male

DRUGS (2)
  1. CARBAMAZEPINE [Suspect]
     Indication: TRIGEMINAL NEURALGIA
     Dosage: (DF ORAL)
     Route: 048
     Dates: start: 20110201, end: 20110203
  2. DILTIAZEM [Suspect]
     Indication: PRODUCT USED FOR UNKNOWN INDICATION
     Dosage: (DF)

REACTIONS (5)
  - TRIGEMINAL NEURALGIA [None]
  - CARDIOVASCULAR DISORDER [None]
  - DIZZINESS [None]
  - NAUSEA [None]
  - DRUG INTERACTION [None]
